FAERS Safety Report 25175059 (Version 1)
Quarter: 2025Q2

REPORT INFORMATION
  Report Type: Spontaneous
  Country: GR (occurrence: GR)
  Receive Date: 20250408
  Receipt Date: 20250408
  Transmission Date: 20250716
  Serious: Yes (Hospitalization, Other)
  Sender: ELI LILLY AND CO
  Company Number: GR-REGENERON PHARMACEUTICALS, INC.-2025-053350

PATIENT
  Age: 77 Year
  Sex: Female

DRUGS (4)
  1. PEMETREXED [Suspect]
     Active Substance: PEMETREXED
     Indication: Non-small cell lung cancer stage IV
     Route: 065
     Dates: start: 202305
  2. LIBTAYO [Suspect]
     Active Substance: CEMIPLIMAB-RWLC
     Indication: Non-small cell lung cancer stage IV
     Route: 065
     Dates: start: 202305
  3. CARBOPLATIN [Suspect]
     Active Substance: CARBOPLATIN
     Indication: Non-small cell lung cancer stage IV
     Route: 065
     Dates: start: 202305
  4. DEXAMETHASONE [Concomitant]
     Active Substance: DEXAMETHASONE
     Indication: Brain oedema
     Route: 048
     Dates: start: 202305

REACTIONS (15)
  - Diarrhoea [Unknown]
  - Vomiting [Unknown]
  - Chest pain [Unknown]
  - Dehydration [Unknown]
  - Oropharyngeal pain [Unknown]
  - Asthenia [Unknown]
  - Fatigue [Unknown]
  - Gastritis [Unknown]
  - Pneumonitis [Unknown]
  - Hypertransaminasaemia [Unknown]
  - Anaemia [Unknown]
  - Pruritus [Unknown]
  - Rash maculo-papular [Unknown]
  - Nausea [Unknown]
  - Abdominal pain upper [Unknown]

NARRATIVE: CASE EVENT DATE: 20240201
